FAERS Safety Report 23319519 (Version 1)
Quarter: 2023Q4

REPORT INFORMATION
  Report Type: Spontaneous
  Country: US (occurrence: None)
  Receive Date: 20231220
  Receipt Date: 20231220
  Transmission Date: 20240110
  Serious: No
  Sender: FDA-Public Use
  Company Number: US-ROCHE-3353161

PATIENT
  Age: 54 Year
  Sex: Male
  Weight: 161 kg

DRUGS (3)
  1. ACTIVASE [Suspect]
     Active Substance: ALTEPLASE
     Indication: Cerebrovascular accident
     Dosage: NO
     Route: 042
     Dates: start: 20230518, end: 20230518
  2. ACTIVASE [Suspect]
     Active Substance: ALTEPLASE
  3. ADALIMUMAB [Concomitant]
     Active Substance: ADALIMUMAB\ISOPROPYL ALCOHOL
     Indication: Psoriasis

REACTIONS (4)
  - Treatment delayed [Unknown]
  - Product physical issue [Unknown]
  - Device issue [Unknown]
  - No adverse event [Unknown]

NARRATIVE: CASE EVENT DATE: 20230518
